FAERS Safety Report 17523674 (Version 2)
Quarter: 2020Q1

REPORT INFORMATION
  Report Type: Spontaneous
  Country: ES (occurrence: ES)
  Receive Date: 20200310
  Receipt Date: 20200320
  Transmission Date: 20200409
  Serious: Yes (Other)
  Sender: FDA-Public Use
  Company Number: ES-ALEXION PHARMACEUTICALS INC.-A202002910

PATIENT
  Sex: Male

DRUGS (1)
  1. SOLIRIS [Suspect]
     Active Substance: ECULIZUMAB
     Indication: ATYPICAL HAEMOLYTIC URAEMIC SYNDROME
     Dosage: 300 MG, Q15 DAYS
     Route: 065
     Dates: start: 201909

REACTIONS (6)
  - Hepatotoxicity [Unknown]
  - Hypertransaminasaemia [Not Recovered/Not Resolved]
  - Nasopharyngitis [Recovering/Resolving]
  - Hypoalbuminaemia [Not Recovered/Not Resolved]
  - Hepatitis [Unknown]
  - Coagulation test abnormal [Not Recovered/Not Resolved]

NARRATIVE: CASE EVENT DATE: 20200226
